FAERS Safety Report 6182395-4 (Version None)
Quarter: 2009Q2

REPORT INFORMATION
  Report Type: 
  Country: None (occurrence: None)
  Receive Date: 20090505
  Receipt Date: 20090505
  Transmission Date: 20091009
  Serious: No
  Sender: FDA-Public Use
  Company Number: None

PATIENT
  Age: 57 Year
  Sex: Female
  Weight: 56.6996 kg

DRUGS (1)
  1. ACTONEL [Suspect]
     Indication: OSTEOPOROSIS
     Dosage: 1 MONTHLY
     Dates: start: 20090427

REACTIONS (6)
  - ARTHRALGIA [None]
  - CHILLS [None]
  - DIARRHOEA [None]
  - MYALGIA [None]
  - NECK PAIN [None]
  - PYREXIA [None]
